FAERS Safety Report 7669808-3 (Version None)
Quarter: 2011Q3

REPORT INFORMATION
  Report Type: 
  Country: None (occurrence: None)
  Receive Date: 20110808
  Receipt Date: 20110808
  Transmission Date: 20111222
  Serious: Yes (Other)
  Sender: FDA-Public Use
  Company Number: US-ABBOTT-11P-163-0841743-00

PATIENT
  Sex: Female
  Weight: 90.8 kg

DRUGS (9)
  1. HUMIRA [Suspect]
     Indication: CROHN'S DISEASE
     Dates: start: 20110501, end: 20110623
  2. ESTRADIOL [Concomitant]
     Indication: HORMONE REPLACEMENT THERAPY
  3. CYMBALTA [Concomitant]
     Indication: FIBROMYALGIA
  4. HYDROCODONE [Concomitant]
     Indication: PAIN
  5. EFFEXOR [Concomitant]
     Indication: DEPRESSION
  6. HUMIRA [Suspect]
     Dates: start: 20110725
  7. AMBIEN [Concomitant]
     Indication: INSOMNIA
  8. VITAMIN D [Concomitant]
     Indication: VITAMIN SUPPLEMENTATION
  9. ATIVAN [Concomitant]
     Indication: PRODUCT USED FOR UNKNOWN INDICATION

REACTIONS (8)
  - CHEST DISCOMFORT [None]
  - HYPOPHAGIA [None]
  - CHILLS [None]
  - COSTOCHONDRITIS [None]
  - VOMITING [None]
  - HYPERHIDROSIS [None]
  - CHEST PAIN [None]
  - DYSPNOEA [None]
